FAERS Safety Report 14162024 (Version 2)
Quarter: 2017Q4

REPORT INFORMATION
  Report Type: Spontaneous
  Country: SA (occurrence: SA)
  Receive Date: 20171106
  Receipt Date: 20171129
  Transmission Date: 20180321
  Serious: Yes (Hospitalization)
  Sender: FDA-Public Use
  Company Number: SA-SA-2017SA208689

PATIENT
  Age: 52 Year
  Sex: Male
  Weight: 112 kg

DRUGS (1)
  1. LEMTRADA [Suspect]
     Active Substance: ALEMTUZUMAB
     Indication: MULTIPLE SCLEROSIS
     Route: 041

REACTIONS (22)
  - Sepsis [Unknown]
  - Renal tubular atrophy [Unknown]
  - Ischaemic stroke [Unknown]
  - Acute kidney injury [Unknown]
  - Dysphagia [Unknown]
  - End stage renal disease [Unknown]
  - Yellow skin [Unknown]
  - Generalised tonic-clonic seizure [Unknown]
  - Pulmonary alveolar haemorrhage [Unknown]
  - Respiratory distress [Unknown]
  - Renal tubular injury [Unknown]
  - Arteriosclerosis [Unknown]
  - Chromaturia [Unknown]
  - Back pain [Unknown]
  - Blood creatinine abnormal [Unknown]
  - Diabetic nephropathy [Unknown]
  - Pyrexia [Unknown]
  - Liver injury [Unknown]
  - Kidney fibrosis [Unknown]
  - Scleral discolouration [Unknown]
  - Autoimmune haemolytic anaemia [Unknown]
  - Immune thrombocytopenic purpura [Unknown]
